FAERS Safety Report 5912495-2 (Version None)
Quarter: 2008Q4

REPORT INFORMATION
  Report Type: 
  Country: None (occurrence: None)
  Receive Date: 20081007
  Receipt Date: 20081007
  Transmission Date: 20090506
  Serious: Yes (Other)
  Sender: FDA-Public Use
  Company Number: None

PATIENT
  Age: 25 Year
  Sex: Female
  Weight: 90.7194 kg

DRUGS (1)
  1. MIRENA [Suspect]

REACTIONS (8)
  - ABDOMINAL DISTENSION [None]
  - ACNE [None]
  - FEELING ABNORMAL [None]
  - LIBIDO DECREASED [None]
  - MEMORY IMPAIRMENT [None]
  - SKIN STRIAE [None]
  - WAIST CIRCUMFERENCE INCREASED [None]
  - WEIGHT INCREASED [None]
